FAERS Safety Report 5647903-8 (Version None)
Quarter: 2008Q1

REPORT INFORMATION
  Report Type: 
  Country: None (occurrence: None)
  Receive Date: 20080228
  Receipt Date: 20080218
  Transmission Date: 20080703
  Serious: Yes (Hospitalization, Other)
  Sender: FDA-Public Use
  Company Number: 2008-00172

PATIENT
  Age: 72 Year
  Sex: Male
  Weight: 85.9 kg

DRUGS (7)
  1. VELCADE [Suspect]
     Indication: MULTIPLE MYELOMA
     Dosage: 1.30 MG/M2, UNK, INTRAVENOUS
     Route: 042
     Dates: start: 20071106, end: 20080103
  2. ALLOPURINOL [Concomitant]
  3. NOVOLIN N [Concomitant]
  4. HYZAAR [Concomitant]
  5. ATENOLOL [Concomitant]
  6. DUONEB [Concomitant]
  7. NITROGLYCERIN [Concomitant]

REACTIONS (13)
  - APHASIA [None]
  - BLOOD BICARBONATE INCREASED [None]
  - BLOOD PH DECREASED [None]
  - BLOOD POTASSIUM INCREASED [None]
  - CEREBRAL HYPOPERFUSION [None]
  - CONVULSION [None]
  - FATIGUE [None]
  - FIBROSIS [None]
  - HYPOTENSION [None]
  - PCO2 INCREASED [None]
  - PO2 INCREASED [None]
  - RESPIRATORY DISORDER [None]
  - UNRESPONSIVE TO STIMULI [None]
